FAERS Safety Report 18611248 (Version 1)
Quarter: 2020Q4

REPORT INFORMATION
  Report Type: Spontaneous
  Country: FR (occurrence: FR)
  Receive Date: 20201214
  Receipt Date: 20201214
  Transmission Date: 20210114
  Serious: Yes (Hospitalization)
  Sender: FDA-Public Use
  Company Number: FR-MYLANLABS-2020M1100809

PATIENT
  Age: 85 Year
  Sex: Female
  Weight: 49 kg

DRUGS (8)
  1. MORPHINE [Interacting]
     Active Substance: MORPHINE
     Indication: ABDOMINAL PAIN
     Dosage: 3 MILLIGRAM, QH
     Route: 042
     Dates: start: 20201030, end: 20201101
  2. ACUPAN [Concomitant]
     Active Substance: NEFOPAM HYDROCHLORIDE
     Indication: ABDOMINAL PAIN
     Dosage: 20 MILLIGRAM, QD
     Route: 042
     Dates: start: 20201029, end: 20201030
  3. KARDEGIC [Concomitant]
     Active Substance: ASPIRIN DL-LYSINE
     Indication: ATRIAL FIBRILLATION
     Dosage: 1 DOSAGE FORM, QD
     Route: 048
     Dates: end: 20201030
  4. TARDYFERON [Concomitant]
     Active Substance: FERROUS SULFATE
     Indication: IRON DEFICIENCY ANAEMIA
     Dosage: 2 DOSAGE FORM, QD
     Route: 048
     Dates: end: 20201105
  5. LANSOPRAZOLE. [Concomitant]
     Active Substance: LANSOPRAZOLE
     Indication: GASTROOESOPHAGEAL REFLUX DISEASE
     Dosage: 30 MILLIGRAM, QD
     Route: 048
     Dates: start: 20201029, end: 20201030
  6. OROZAMUDOL 50 MG, COMPRIM? ORODISPERSIBLE [Suspect]
     Active Substance: TRAMADOL
     Indication: ABDOMINAL PAIN
     Dosage: 1 DOSAGE FORM, QD
     Route: 048
     Dates: start: 20201029, end: 20201030
  7. SOTALOL                            /00371502/ [Concomitant]
     Active Substance: SOTALOL HYDROCHLORIDE
     Indication: ATRIAL FIBRILLATION
     Dosage: 160 MILLIGRAM, QD
     Route: 048
     Dates: end: 20201030
  8. LERCANIDIPINE                      /01366402/ [Concomitant]
     Active Substance: LERCANIDIPINE HYDROCHLORIDE
     Indication: HYPERTENSION
     Dosage: 10 MILLIGRAM, QD
     Route: 048
     Dates: end: 20201030

REACTIONS (4)
  - Respiratory distress [Recovered/Resolved]
  - Drug interaction [Recovered/Resolved]
  - Miosis [Recovered/Resolved]
  - Altered state of consciousness [Recovered/Resolved]

NARRATIVE: CASE EVENT DATE: 20201030
